FAERS Safety Report 18929259 (Version 1)
Quarter: 2021Q1

REPORT INFORMATION
  Report Type: Spontaneous
  Country: US (occurrence: US)
  Receive Date: 20210223
  Receipt Date: 20210223
  Transmission Date: 20210420
  Serious: Yes (Other)
  Sender: FDA-Public Use
  Company Number: NVSC2021US041373

PATIENT
  Age: 31 Year
  Sex: Male

DRUGS (2)
  1. ERTAPENEM. [Concomitant]
     Active Substance: ERTAPENEM SODIUM
     Indication: CELLULITIS
     Dosage: 1 G, QD
     Route: 042
  2. CEFAZOLIN [Suspect]
     Active Substance: CEFAZOLIN
     Indication: CELLULITIS
     Dosage: 2 G, Q8H (7 DOSES)
     Route: 042

REACTIONS (2)
  - Hallucination, auditory [Recovered/Resolved]
  - Hallucination, visual [Recovering/Resolving]
